FAERS Safety Report 4654919-7 (Version None)
Quarter: 2005Q2

REPORT INFORMATION
  Report Type: 
  Country: None (occurrence: None)
  Receive Date: 20050506
  Receipt Date: 20040915
  Transmission Date: 20051028
  Serious: No
  Sender: FDA-Public Use
  Company Number: US-GLAXOSMITHKLINE-A0525774A

PATIENT
  Sex: Female

DRUGS (2)
  1. AMOXIL [Suspect]
     Dosage: 500MG THREE TIMES PER DAY
     Route: 048
     Dates: start: 20040210, end: 20040222
  2. ADVAIR DISKUS 100/50 [Suspect]
     Indication: DRUG USE FOR UNKNOWN INDICATION
     Dosage: 1PUFF PER DAY
     Route: 055
     Dates: start: 20040901

REACTIONS (4)
  - DEHYDRATION [None]
  - DRY MOUTH [None]
  - EYE SWELLING [None]
  - ILL-DEFINED DISORDER [None]
